FAERS Safety Report 7945986-3 (Version None)
Quarter: 2011Q4

REPORT INFORMATION
  Report Type: 
  Country: None (occurrence: None)
  Receive Date: 20111129
  Receipt Date: 20090726
  Transmission Date: 20120403
  Serious: Yes (Death, Hospitalization, Other)
  Sender: FDA-Public Use
  Company Number: US-BAYER-200927728NA

PATIENT
  Age: 46 Year
  Sex: Male
  Weight: 124.7 kg

DRUGS (18)
  1. TRASYLOL [Suspect]
     Indication: CORONARY ARTERY BYPASS
  2. HEPARIN [Concomitant]
     Dosage: UNK
     Route: 042
     Dates: start: 20060913
  3. NITROGLYCERIN [Concomitant]
     Dosage: DAILY DOSE 6 ?G
     Route: 042
     Dates: start: 20060911
  4. EPINEPHRINE [Concomitant]
     Dosage: UNK
     Route: 042
     Dates: start: 20060913
  5. HUMALOG [Concomitant]
     Dosage: LONG TERM MEDICATION
     Route: 058
  6. HEPARIN [Concomitant]
     Dosage: UNK
     Route: 042
     Dates: start: 20060911
  7. COZAAR [Concomitant]
     Dosage: LONG TERM MEDICATION
     Route: 048
  8. VERSED [Concomitant]
     Dosage: DAILY DOSE 10 MG
     Route: 042
     Dates: start: 20060913
  9. INSULIN [Concomitant]
     Dosage: UNK
     Route: 042
     Dates: start: 20060913
  10. TRASYLOL [Suspect]
     Indication: THORACIC OPERATION
     Route: 042
     Dates: start: 20060913
  11. AMIODARONE HCL [Concomitant]
     Dosage: UNK
     Route: 041
     Dates: start: 20060913
  12. TRASYLOL [Suspect]
     Indication: CARDIAC PACEMAKER INSERTION
  13. VERSED [Concomitant]
     Dosage: DAILY DOSE 2 MG
     Route: 042
     Dates: start: 20060911
  14. LASIX [Concomitant]
     Dosage: DAILY DOSE 60 MG
     Route: 042
     Dates: start: 20060913
  15. NICARDIPINE HCL [Concomitant]
     Dosage: UNK
     Route: 042
     Dates: start: 20060913
  16. LANTUS [Concomitant]
     Dosage: LONG TERM MEDICATION
     Route: 058
  17. METFORMIN HCL [Concomitant]
     Dosage: LONG-TERM MEDICATION
     Route: 048
  18. ASPIRIN [Concomitant]
     Dosage: UNK
     Route: 048
     Dates: start: 19990101

REACTIONS (13)
  - RENAL IMPAIRMENT [None]
  - ANXIETY [None]
  - UNEVALUABLE EVENT [None]
  - MULTI-ORGAN FAILURE [None]
  - STRESS [None]
  - PAIN [None]
  - ANHEDONIA [None]
  - INJURY [None]
  - RENAL FAILURE [None]
  - RENAL INJURY [None]
  - DEATH [None]
  - EMOTIONAL DISTRESS [None]
  - FEAR [None]
